FAERS Safety Report 18986543 (Version 2)
Quarter: 2021Q1

REPORT INFORMATION
  Report Type: Spontaneous
  Country: JP (occurrence: JP)
  Receive Date: 20210309
  Receipt Date: 20210330
  Transmission Date: 20210420
  Serious: Yes (Hospitalization)
  Sender: FDA-Public Use
  Company Number: JP-MYLANLABS-2021M1014456

PATIENT
  Age: 50 Year
  Sex: Female

DRUGS (1)
  1. TAMOXIFEN [Suspect]
     Active Substance: TAMOXIFEN
     Indication: ADJUVANT THERAPY
     Route: 065

REACTIONS (3)
  - Benign ovarian tumour [Recovered/Resolved]
  - Leiomyoma [Recovered/Resolved]
  - Uterine leiomyoma [Recovered/Resolved]
